FAERS Safety Report 5990745-4 (Version None)
Quarter: 2008Q4

REPORT INFORMATION
  Report Type: 
  Country: None (occurrence: None)
  Receive Date: 20081211
  Receipt Date: 20081201
  Transmission Date: 20090506
  Serious: Yes (Hospitalization)
  Sender: FDA-Public Use
  Company Number: US-WATSON-2008-07074

PATIENT
  Age: 61 Year
  Sex: Male

DRUGS (5)
  1. THIORIDAZINE (WATSON LABORATORIES) [Suspect]
     Indication: BIPOLAR DISORDER
     Dosage: UNK
  2. ENALAPRIL MALEATE [Concomitant]
     Indication: HYPERTENSION
  3. HYDROCHLOROTHIAZIDE [Concomitant]
     Indication: HYPERTENSION
  4. LEVOTHYROXINE SODIUM [Concomitant]
     Indication: HYPOTHYROIDISM
  5. RISPERIDONE [Concomitant]
     Indication: BIPOLAR DISORDER

REACTIONS (2)
  - HEPATITIS CHOLESTATIC [None]
  - VANISHING BILE DUCT SYNDROME [None]
